FAERS Safety Report 9417174 (Version 1)
Quarter: 2013Q3

REPORT INFORMATION
  Report Type: Spontaneous
  Country: CA (occurrence: None)
  Receive Date: 20130722
  Receipt Date: 20130722
  Transmission Date: 20140515
  Serious: Yes (Other)
  Sender: FDA-Public Use
  Company Number: 2013P1012198

PATIENT
  Sex: 0

DRUGS (1)
  1. OXYCODONE [Suspect]

REACTIONS (2)
  - Depressed level of consciousness [None]
  - Exposure during breast feeding [None]
